FAERS Safety Report 10963730 (Version 1)
Quarter: 2015Q1

REPORT INFORMATION
  Report Type: Spontaneous
  Country: US (occurrence: US)
  Receive Date: 20150328
  Receipt Date: 20150328
  Transmission Date: 20150721
  Serious: No
  Sender: FDA-Public Use
  Company Number: US-009507513-1503USA011360

PATIENT
  Sex: Female

DRUGS (3)
  1. IMPLANON [Concomitant]
     Active Substance: ETONOGESTREL
     Dosage: IN THE RIGHT ARM
     Route: 059
     Dates: start: 2009, end: 2012
  2. NEXPLANON [Suspect]
     Active Substance: ETONOGESTREL
     Indication: CONTRACEPTION
     Dosage: IN THE ORIGINAL INSERTION SITE IN THE RIGHT ARM
     Route: 059
     Dates: start: 20150213
  3. IMPLANON [Concomitant]
     Active Substance: ETONOGESTREL
     Dosage: IN THE RIGHT ARM (IN THE SAME INSERTION SITE)
     Dates: start: 2012, end: 20150213

REACTIONS (4)
  - Implant site pain [Not Recovered/Not Resolved]
  - Implant site fibrosis [Not Recovered/Not Resolved]
  - Foreign body reaction [Not Recovered/Not Resolved]
  - Hypoaesthesia [Not Recovered/Not Resolved]

NARRATIVE: CASE EVENT DATE: 2015
